FAERS Safety Report 5378890-8 (Version None)
Quarter: 2007Q3

REPORT INFORMATION
  Report Type: 
  Country: None (occurrence: None)
  Receive Date: 20070705
  Receipt Date: 20070626
  Transmission Date: 20080115
  Serious: Yes (Hospitalization)
  Sender: FDA-Public Use
  Company Number: US-ROCHE-501507

PATIENT
  Age: 65 Year
  Sex: Male
  Weight: 117.9 kg

DRUGS (9)
  1. CAPECITABINE [Suspect]
     Dosage: TOTAL ADMINISTERED : 2150 UNITS
     Route: 065
     Dates: start: 20070410
  2. OXALIPLATIN [Suspect]
     Dosage: TOTAL ADMINISTERED : 93 MG
     Route: 065
     Dates: start: 20070410
  3. DOCETAXEL [Suspect]
     Dosage: TOTAL ADMINISTERED : 46 MG
     Route: 065
     Dates: start: 20070410
  4. GLUCOPHAGE [Concomitant]
  5. GLYBURIDE [Concomitant]
  6. INSULIN [Concomitant]
  7. LASIX [Concomitant]
  8. NAPROSYN [Concomitant]
  9. POTASSIUM CHLORIDE [Concomitant]

REACTIONS (5)
  - DEHYDRATION [None]
  - DYSPHAGIA [None]
  - MALNUTRITION [None]
  - NAUSEA [None]
  - VOMITING [None]
